FAERS Safety Report 8991075 (Version 2)
Quarter: 2013Q2

REPORT INFORMATION
  Report Type: Spontaneous
  Country: US (occurrence: None)
  Receive Date: 20121220
  Receipt Date: 20130411
  Transmission Date: 20140414
  Serious: Yes (Other)
  Sender: FDA-Public Use
  Company Number: JPI-P-026596

PATIENT
  Age: 54 Year
  Sex: Female
  Weight: 107.05 kg

DRUGS (9)
  1. XYREM [Suspect]
     Indication: NARCOLEPSY
     Dosage: (2.25 GM,2 IN 1 D)
     Route: 048
     Dates: start: 20050412
  2. XYREM [Suspect]
     Indication: SOMNOLENCE
     Dosage: (2.25 GM,2 IN 1 D)
     Route: 048
     Dates: start: 20050412
  3. ATORVASTATIN CALCIUM [Concomitant]
  4. LEVOTHYROXINE SODIUM [Concomitant]
  5. TRIAMTERENE/HYDROCHLOROTHIAZIDE [Concomitant]
  6. VENLAFAXINE HYDROCHLORIDE [Concomitant]
  7. VILAZODONE HYDROCHLORIDE [Concomitant]
  8. LURASIDONE HYDROCHLORIDE [Concomitant]
  9. ALPRAZOLAM [Concomitant]

REACTIONS (4)
  - Diabetes mellitus [None]
  - Cardiac stress test abnormal [None]
  - Weight increased [None]
  - Procedural pain [None]
